FAERS Safety Report 18559584 (Version 1)
Quarter: 2020Q4

REPORT INFORMATION
  Report Type: Spontaneous
  Country: US (occurrence: US)
  Receive Date: 20201128
  Receipt Date: 20201128
  Transmission Date: 20210114
  Serious: No
  Sender: FDA-Public Use
  Company Number: None

PATIENT
  Age: 58 Year
  Sex: Female
  Weight: 72 kg

DRUGS (7)
  1. QUETIAPINE ER [Concomitant]
     Active Substance: QUETIAPINE
  2. METFORMAN [Concomitant]
     Active Substance: METFORMIN HYDROCHLORIDE
  3. TOPAMAX [Concomitant]
     Active Substance: TOPIRAMATE
  4. CLONAZEPAM. [Concomitant]
     Active Substance: CLONAZEPAM
  5. LEVOTHYROXINE. [Concomitant]
     Active Substance: LEVOTHYROXINE
  6. LAMOTRIGINE. [Concomitant]
     Active Substance: LAMOTRIGINE
  7. CAPLYTA [Suspect]
     Active Substance: LUMATEPERONE
     Indication: BIPOLAR DISORDER
     Route: 048

REACTIONS (10)
  - Hypersensitivity [None]
  - Feeling cold [None]
  - Near death experience [None]
  - Burning sensation [None]
  - Headache [None]
  - Pain [None]
  - Balance disorder [None]
  - Impaired driving ability [None]
  - Illness [None]
  - Respiration abnormal [None]

NARRATIVE: CASE EVENT DATE: 20201126
